FAERS Safety Report 7434937-6 (Version None)
Quarter: 2011Q2

REPORT INFORMATION
  Report Type: 
  Country: None (occurrence: None)
  Receive Date: 20110425
  Receipt Date: 20110418
  Transmission Date: 20111010
  Serious: Yes (Death)
  Sender: FDA-Public Use
  Company Number: AU-ROCHE-771896

PATIENT
  Sex: Male
  Weight: 18.3 kg

DRUGS (3)
  1. METHOTREXATE [Suspect]
     Dosage: THERAPY ONGOING AT TIME OF PATIENT'S DEATH. FREQ:WEEKLY
     Route: 065
     Dates: start: 20101008, end: 20110417
  2. TOCILIZUMAB [Suspect]
     Dosage: DATE LAST DOSE PRIOR TO SAE 7 APR 2011. THERAPY ONGOING AT TIME OF PATIENT'S DEATH. FREQ:BI-WEEKLY
     Route: 042
     Dates: start: 20090423, end: 20110417
  3. NEUROFEN [Concomitant]
     Dosage: FREQUENCY : AS REQUIRED
     Dates: start: 20090910, end: 20110417

REACTIONS (1)
  - DEATH [None]
